FAERS Safety Report 9358433 (Version 1)
Quarter: 2013Q2

REPORT INFORMATION
  Report Type: Spontaneous
  Country: ES (occurrence: ES)
  Receive Date: 20130620
  Receipt Date: 20130620
  Transmission Date: 20140414
  Serious: Yes (Other)
  Sender: FDA-Public Use
  Company Number: PHHY2013ES062891

PATIENT
  Age: 71 Year
  Sex: Male

DRUGS (3)
  1. PROMETAX [Suspect]
     Indication: DEMENTIA ALZHEIMER^S TYPE
     Dosage: 1.5 MG, UNK
     Route: 048
  2. PROMETAX [Suspect]
     Dosage: 3 MG, UNK
     Route: 048
  3. PROMETAX [Suspect]
     Dosage: 4.5 MG, BID
     Route: 048
     Dates: start: 20120912

REACTIONS (1)
  - Oedema peripheral [Not Recovered/Not Resolved]
